FAERS Safety Report 13950220 (Version 1)
Quarter: 2017Q3

REPORT INFORMATION
  Report Type: Spontaneous
  Country: FR (occurrence: FR)
  Receive Date: 20170908
  Receipt Date: 20170908
  Transmission Date: 20171128
  Serious: Yes (Hospitalization)
  Sender: FDA-Public Use
  Company Number: FR-ALLERGAN-1749827US

PATIENT
  Age: 63 Year
  Sex: Female

DRUGS (2)
  1. ESCITALOPRAM OXALATE - BP [Suspect]
     Active Substance: ESCITALOPRAM OXALATE
     Indication: SUICIDE ATTEMPT
     Dosage: UNK UNK, SINGLE
     Route: 048
     Dates: start: 20160207, end: 20160207
  2. PARACETAMOL [Suspect]
     Active Substance: ACETAMINOPHEN
     Indication: SUICIDE ATTEMPT
     Dosage: 8 G, SINGLE
     Route: 048
     Dates: start: 20160207, end: 20160207

REACTIONS (6)
  - Psychomotor skills impaired [Recovered/Resolved]
  - Bradyphrenia [Recovered/Resolved]
  - Depressed mood [Unknown]
  - Anhedonia [Unknown]
  - Muscular weakness [Unknown]
  - Toxicity to various agents [Recovered/Resolved]

NARRATIVE: CASE EVENT DATE: 20160207
